FAERS Safety Report 5007044-X (Version None)
Quarter: 2006Q2

REPORT INFORMATION
  Report Type: 
  Country: None (occurrence: None)
  Receive Date: 20060517
  Receipt Date: 20060502
  Transmission Date: 20061013
  Serious: Yes (Other)
  Sender: FDA-Public Use
  Company Number: GXKR20060GB02464

PATIENT
  Age: 79 Year
  Sex: Female

DRUGS (8)
  1. CITALOPRAM (NGX) (CITALOPRAM) [Suspect]
     Indication: ANTIDEPRESSANT THERAPY
     Dosage: 30 MG, QD, MANE, ORAL
     Route: 048
     Dates: end: 20060401
  2. ACETYLSALICYLIC ACID (NGX)(ACETYLSALICYLIC ACID) [Suspect]
     Indication: ANTIPLATELET THERAPY
     Dosage: 75 MG, QD, MANE, ORAL
     Route: 048
     Dates: end: 20060401
  3. DICLOFENAC(DICLOFENAC) [Suspect]
     Indication: ANALGESIC EFFECT
     Dosage: 50 MG, QD, TDS, ORAL
     Route: 048
     Dates: end: 20060401
  4. ZOPICLONE (ZOPICLONE) [Concomitant]
  5. SOTALOL HCL [Concomitant]
  6. OMEPRAZOLE [Concomitant]
  7. AMISULPRIDE (AMISULPRIDE) [Concomitant]
  8. TETRABENAZINE (TETRABENAZINE) [Concomitant]

REACTIONS (2)
  - GASTROINTESTINAL HAEMORRHAGE [None]
  - IRON DEFICIENCY ANAEMIA [None]
